FAERS Safety Report 15569273 (Version 1)
Quarter: 2018Q4

REPORT INFORMATION
  Report Type: Report from Study
  Country: CN (occurrence: CN)
  Receive Date: 20181031
  Receipt Date: 20181031
  Transmission Date: 20190205
  Serious: Yes (Other)
  Sender: FDA-Public Use
  Company Number: CN-ROCHE-2208264

PATIENT

DRUGS (2)
  1. BEVACIZUMAB. [Suspect]
     Active Substance: BEVACIZUMAB
     Indication: COLORECTAL CANCER
     Dosage: WHEN COMBINATION WITH MFOLFOX, FOLFIRI AND 5-FLUOROURACIL MONOTHERAPY REGIMEN.
     Route: 042
  2. BEVACIZUMAB. [Suspect]
     Active Substance: BEVACIZUMAB
     Dosage: WHEN USED IN COMBINATION WITH XELOX AND CAPECITABINE MONOTHERAPY REGIMEN
     Route: 042

REACTIONS (1)
  - Haematochezia [Recovered/Resolved]
